FAERS Safety Report 22242172 (Version 1)
Quarter: 2023Q2

REPORT INFORMATION
  Report Type: Spontaneous
  Country: US (occurrence: None)
  Receive Date: 20230422
  Receipt Date: 20230422
  Transmission Date: 20230721
  Serious: No
  Sender: FDA-Public Use
  Company Number: 2023A076231

PATIENT
  Sex: Female
  Weight: 54.4 kg

DRUGS (1)
  1. LYNPARZA [Suspect]
     Active Substance: OLAPARIB
     Indication: Ovarian cancer
     Route: 048
     Dates: start: 20230227

REACTIONS (2)
  - Sleep disorder [Not Recovered/Not Resolved]
  - Fatigue [Not Recovered/Not Resolved]
